FAERS Safety Report 19892700 (Version 2)
Quarter: 2021Q4

REPORT INFORMATION
  Report Type: Spontaneous
  Country: US (occurrence: US)
  Receive Date: 20210929
  Receipt Date: 20211109
  Transmission Date: 20220303
  Serious: No
  Sender: FDA-Public Use
  Company Number: US-JNJFOC-20210931762

PATIENT
  Age: 53 Year
  Sex: Female
  Weight: 93.070 kg

DRUGS (1)
  1. WOMENS ROGAINE UNSCENTED [Suspect]
     Active Substance: MINOXIDIL
     Indication: Alopecia
     Dosage: DOSE: A LITTLE GLASS CONTAINER AND MORE THAN HALF CAPFUL
     Route: 065

REACTIONS (1)
  - Incorrect dose administered [Unknown]
